FAERS Safety Report 6678620-3 (Version None)
Quarter: 2010Q2

REPORT INFORMATION
  Report Type: 
  Country: None (occurrence: None)
  Receive Date: 20100412
  Receipt Date: 20100412
  Transmission Date: 20101027
  Serious: Yes (Hospitalization)
  Sender: FDA-Public Use
  Company Number: None

PATIENT
  Age: 55 Year
  Sex: Male
  Weight: 88.2 kg

DRUGS (10)
  1. LEVOFLOXACIN [Suspect]
     Indication: INFECTION
     Dosage: 750 MG PO DAILY
     Route: 048
  2. ABACAVIR [Concomitant]
  3. LAMIVUDINE [Concomitant]
  4. ACETAMINOPHEN [Concomitant]
  5. ACYCLOVIR [Concomitant]
  6. DIGOXIN [Concomitant]
  7. RALTEGRAVIR [Concomitant]
  8. CEFADROXIL [Concomitant]
  9. FLUCONAZOLE [Concomitant]
  10. MAGNESIUM SULFATE [Concomitant]

REACTIONS (1)
  - RENAL FAILURE ACUTE [None]
